FAERS Safety Report 9414460 (Version 1)
Quarter: 2013Q3

REPORT INFORMATION
  Report Type: Spontaneous
  Country: US (occurrence: US)
  Receive Date: 20130723
  Receipt Date: 20130723
  Transmission Date: 20140515
  Serious: Yes (Other)
  Sender: FDA-Public Use
  Company Number: US-JHP PHARMACEUTICALS, LLC-JHP201300466

PATIENT
  Age: 64 Year
  Sex: Female

DRUGS (5)
  1. KETALAR [Suspect]
     Indication: OBSESSIVE-COMPULSIVE DISORDER
     Dosage: 0.5 MG/KG, UNK
     Route: 042
  2. FLUVOXAMINE [Concomitant]
  3. RILUZOLE [Concomitant]
  4. NAC [Concomitant]
  5. ALPRAZOLAM [Concomitant]

REACTIONS (11)
  - Suicidal ideation [Recovered/Resolved]
  - Off label use [Recovered/Resolved]
  - Depersonalisation [Recovered/Resolved]
  - Paraesthesia oral [Recovered/Resolved]
  - Paraesthesia [Recovered/Resolved]
  - Nausea [Recovered/Resolved]
  - Poor quality sleep [Recovered/Resolved]
  - Depressed mood [Recovered/Resolved]
  - Asthenia [Recovered/Resolved]
  - Paranoia [Recovered/Resolved]
  - Anxiety [Recovered/Resolved]
